FAERS Safety Report 18738270 (Version 1)
Quarter: 2021Q1

REPORT INFORMATION
  Report Type: Report from Study
  Country: US (occurrence: US)
  Receive Date: 20210113
  Receipt Date: 20210113
  Transmission Date: 20210419
  Serious: No
  Sender: FDA-Public Use
  Company Number: US-VANDA PHARMACEUTICALS, INC-2020TASUS004248

PATIENT
  Sex: Female

DRUGS (2)
  1. HETLIOZ [Suspect]
     Active Substance: TASIMELTEON
     Dosage: 20 MG, QD, 1H BEFORE BEDTIME
  2. HETLIOZ [Suspect]
     Active Substance: TASIMELTEON
     Indication: NON-24-HOUR SLEEP-WAKE DISORDER
     Dosage: 20 MG, QD (1 HOUR BEFORE BEDTIME AT THE SAME TIME EVERY NIGHJT)
     Route: 048
     Dates: start: 20200607

REACTIONS (8)
  - Impaired gastric emptying [Unknown]
  - Heart rate abnormal [Unknown]
  - Migraine [Not Recovered/Not Resolved]
  - Somnolence [Unknown]
  - Initial insomnia [Not Recovered/Not Resolved]
  - Blood pressure abnormal [Unknown]
  - Blood glucose increased [Unknown]
  - Constipation [Not Recovered/Not Resolved]
